FAERS Safety Report 6258221-1 (Version None)
Quarter: 2009Q3

REPORT INFORMATION
  Report Type: 
  Country: None (occurrence: None)
  Receive Date: 20090701
  Receipt Date: 20090331
  Transmission Date: 20100115
  Serious: Yes (Disabling)
  Sender: FDA-Public Use
  Company Number: BEN-2009-010

PATIENT
  Sex: Male

DRUGS (3)
  1. BENTYL [Suspect]
     Indication: CROHN'S DISEASE
     Dates: end: 20080501
  2. HUMIRA [Suspect]
     Indication: CROHN'S DISEASE
     Dosage: SUBCUTANEOUS
     Route: 058
     Dates: start: 20080501
  3. LIALDA [Concomitant]

REACTIONS (10)
  - ANAPHYLACTIC REACTION [None]
  - CONFUSIONAL STATE [None]
  - DIZZINESS [None]
  - DYSPNOEA [None]
  - FEELING ABNORMAL [None]
  - MENTAL IMPAIRMENT [None]
  - NERVOUSNESS [None]
  - PAIN [None]
  - PALPITATIONS [None]
  - PYREXIA [None]
